FAERS Safety Report 5461257-1 (Version None)
Quarter: 2007Q3

REPORT INFORMATION
  Report Type: 
  Country: None (occurrence: None)
  Receive Date: 20070920
  Receipt Date: 20060829
  Transmission Date: 20080115
  Serious: No
  Sender: FDA-Public Use
  Company Number: A0618338A

PATIENT
  Age: 60 Year
  Sex: Female

DRUGS (2)
  1. ABREVA [Suspect]
     Dosage: 1APP FIVE TIMES PER DAY
     Route: 061
     Dates: start: 20060815, end: 20060824
  2. ANTIBIOTICS [Concomitant]
     Indication: BRONCHITIS

REACTIONS (2)
  - DRUG INEFFECTIVE [None]
  - IMPAIRED HEALING [None]
